APPROVED DRUG PRODUCT: PIROXICAM
Active Ingredient: PIROXICAM
Strength: 20MG
Dosage Form/Route: CAPSULE;ORAL
Application: A205585 | Product #002 | TE Code: AB
Applicant: ZYDUS LIFESCIENCES LTD
Approved: Jul 17, 2018 | RLD: No | RS: No | Type: RX